FAERS Safety Report 12694922 (Version 1)
Quarter: 2016Q3

REPORT INFORMATION
  Report Type: Spontaneous
  Country: CA (occurrence: CA)
  Receive Date: 20160829
  Receipt Date: 20160829
  Transmission Date: 20161109
  Serious: Yes (Other)
  Sender: FDA-Public Use
  Company Number: CA-PFIZER INC-2016406129

PATIENT
  Age: 34 Year
  Sex: Male

DRUGS (10)
  1. ENBREL [Suspect]
     Active Substance: ETANERCEPT
     Dosage: UNK
  2. NEORAL [Suspect]
     Active Substance: CYCLOSPORINE
     Indication: PSORIASIS
     Dosage: 200 MG, BID
     Route: 048
  3. IMURAN [Suspect]
     Active Substance: AZATHIOPRINE
     Dosage: UNK
  4. REMICADE [Suspect]
     Active Substance: INFLIXIMAB
     Dosage: UNK
  5. TOCILIZUMAB [Suspect]
     Active Substance: TOCILIZUMAB
     Dosage: UNK
  6. ULTRAVATE [Suspect]
     Active Substance: HALOBETASOL PROPIONATE
     Dosage: UNK
  7. METHOTREXATE SODIUM. [Suspect]
     Active Substance: METHOTREXATE SODIUM
     Dosage: UNK
  8. ARAVA [Suspect]
     Active Substance: LEFLUNOMIDE
     Dosage: UNK
  9. HUMIRA [Suspect]
     Active Substance: ADALIMUMAB
     Dosage: UNK
  10. STELARA [Suspect]
     Active Substance: USTEKINUMAB
     Dosage: UNK

REACTIONS (10)
  - Drug ineffective [Unknown]
  - Muscle spasms [Unknown]
  - Stomatitis [Unknown]
  - Drug eruption [Unknown]
  - Pain in extremity [Unknown]
  - Pneumonia [Unknown]
  - Hepatic function abnormal [Unknown]
  - Hypersensitivity [Unknown]
  - Epistaxis [Unknown]
  - Urticaria [Unknown]
